FAERS Safety Report 6469467-1 (Version None)
Quarter: 2009Q4

REPORT INFORMATION
  Report Type: 
  Country: None (occurrence: None)
  Receive Date: 20091203
  Receipt Date: 20091123
  Transmission Date: 20100525
  Serious: Yes (Hospitalization)
  Sender: FDA-Public Use
  Company Number: US-CELGENEUS-163-20785-09111830

PATIENT
  Sex: Female

DRUGS (4)
  1. THALOMID [Suspect]
     Indication: MYELODYSPLASTIC SYNDROME
     Route: 048
     Dates: start: 20060401
  2. THALOMID [Suspect]
     Route: 048
     Dates: start: 20020801
  3. THALOMID [Suspect]
     Dosage: 100MG-150MG
     Route: 048
     Dates: start: 20020301
  4. THALOMID [Suspect]
     Route: 048
     Dates: start: 20020201

REACTIONS (1)
  - HAEMORRHAGE [None]
